FAERS Safety Report 7304487-6 (Version None)
Quarter: 2011Q1

REPORT INFORMATION
  Report Type: 
  Country: None (occurrence: None)
  Receive Date: 20110221
  Receipt Date: 20110216
  Transmission Date: 20110831
  Serious: Yes (Hospitalization)
  Sender: FDA-Public Use
  Company Number: US-MERCK-1102USA02029

PATIENT
  Age: 62 Year
  Sex: Male

DRUGS (2)
  1. JANUVIA [Suspect]
     Indication: DIABETES MELLITUS
     Route: 048
     Dates: end: 20110204
  2. JANUVIA [Suspect]
     Route: 048
     Dates: start: 20110204

REACTIONS (3)
  - DYSURIA [None]
  - POLLAKIURIA [None]
  - BLOOD URINE PRESENT [None]
